FAERS Safety Report 12315335 (Version 2)
Quarter: 2016Q2

REPORT INFORMATION
  Report Type: Report from Study
  Country: US (occurrence: US)
  Receive Date: 20160428
  Receipt Date: 20160608
  Transmission Date: 20160815
  Serious: Yes (Death)
  Sender: FDA-Public Use
  Company Number: US-ABBVIE-16P-163-1577269-00

PATIENT
  Age: 24 Year
  Sex: Male
  Weight: 78.3 kg

DRUGS (2)
  1. RECOMBINANT HUMAN HYALURONIDASE (RHUPH20) [Suspect]
     Active Substance: HYALURONIDASE (HUMAN RECOMBINANT)
     Indication: DRUG LEVEL
     Route: 058
     Dates: start: 20160212, end: 20160212
  2. HUMIRA [Suspect]
     Active Substance: ADALIMUMAB
     Indication: DRUG LEVEL
     Route: 058
     Dates: start: 20160212, end: 20160212

REACTIONS (2)
  - Gun shot wound [Fatal]
  - Completed suicide [Fatal]

NARRATIVE: CASE EVENT DATE: 20160304
